FAERS Safety Report 4299532-9 (Version None)
Quarter: 2004Q1

REPORT INFORMATION
  Report Type: 
  Country: None (occurrence: None)
  Receive Date: 20040217
  Receipt Date: 20040203
  Transmission Date: 20041129
  Serious: Yes (Life-Threatening, Disabling, Other)
  Sender: FDA-Public Use
  Company Number: 2004008288

PATIENT
  Age: 68 Year
  Sex: Female
  Weight: 57.7 kg

DRUGS (2)
  1. LIPITOR [Suspect]
     Indication: HYPERCHOLESTEROLAEMIA
     Dosage: 20 MG DAILY ORAL
     Route: 048
     Dates: start: 20010809, end: 20030908
  2. ATENOLOL [Concomitant]

REACTIONS (1)
  - MYELODYSPLASTIC SYNDROME [None]
